FAERS Safety Report 15932861 (Version 1)
Quarter: 2019Q1

REPORT INFORMATION
  Report Type: Spontaneous
  Country: US (occurrence: US)
  Receive Date: 20190207
  Receipt Date: 20190207
  Transmission Date: 20190417
  Serious: No
  Sender: FDA-Public Use
  Company Number: US-JNJFOC-20190119932

PATIENT
  Age: 63 Year
  Sex: Female
  Weight: 79.38 kg

DRUGS (2)
  1. WOMENS ROGAINE UNSCENTED [Suspect]
     Active Substance: MINOXIDIL
     Route: 061
  2. WOMENS ROGAINE UNSCENTED [Suspect]
     Active Substance: MINOXIDIL
     Indication: ALOPECIA
     Dosage: HALF A CAP-FULL
     Route: 061
     Dates: start: 20190112

REACTIONS (4)
  - Product use in unapproved indication [Unknown]
  - Malaise [Unknown]
  - Alopecia [Unknown]
  - Product physical issue [Unknown]

NARRATIVE: CASE EVENT DATE: 20190112
